FAERS Safety Report 6983735-6 (Version None)
Quarter: 2010Q3

REPORT INFORMATION
  Report Type: 
  Country: None (occurrence: None)
  Receive Date: 20100914
  Receipt Date: 20081217
  Transmission Date: 20110219
  Serious: No
  Sender: FDA-Public Use
  Company Number: US-WYE-H07321708

PATIENT
  Age: 41 Year
  Sex: Female
  Weight: 70.37 kg

DRUGS (2)
  1. ADVIL LIQUI-GELS [Suspect]
     Dosage: UNKNOWN
     Route: 048
     Dates: start: 20081031, end: 20081031
  2. EXCEDRIN (MIGRAINE) [Suspect]
     Indication: PAIN
     Dosage: 1 DOSE FORM
     Route: 048
     Dates: start: 20081031, end: 20081031

REACTIONS (2)
  - AMPHETAMINES POSITIVE [None]
  - DRUG SCREEN FALSE POSITIVE [None]
